FAERS Safety Report 6997844-9 (Version None)
Quarter: 2010Q3

REPORT INFORMATION
  Report Type: 
  Country: None (occurrence: None)
  Receive Date: 20100920
  Receipt Date: 20100914
  Transmission Date: 20110219
  Serious: No
  Sender: FDA-Public Use
  Company Number: US-BIOGENIDEC-2010BI031682

PATIENT
  Sex: Female

DRUGS (2)
  1. AVONEX [Suspect]
     Indication: MULTIPLE SCLEROSIS
     Route: 030
     Dates: start: 20030101
  2. AVONEX [Suspect]
     Route: 030
     Dates: start: 19990701, end: 20030101

REACTIONS (7)
  - BLINDNESS TRANSIENT [None]
  - DIPLOPIA [None]
  - FALL [None]
  - HYPOAESTHESIA [None]
  - PAIN IN EXTREMITY [None]
  - SPEECH DISORDER [None]
  - STRESS [None]
